FAERS Safety Report 7703949-7 (Version None)
Quarter: 2011Q3

REPORT INFORMATION
  Report Type: 
  Country: None (occurrence: None)
  Receive Date: 20110823
  Receipt Date: 20110817
  Transmission Date: 20111222
  Serious: Yes (Hospitalization)
  Sender: FDA-Public Use
  Company Number: US-ASTRAZENECA-2011SE49574

PATIENT
  Age: 74 Year
  Sex: Male

DRUGS (1)
  1. CRESTOR [Suspect]
     Route: 048

REACTIONS (5)
  - STENT PLACEMENT [None]
  - HYDRONEPHROSIS [None]
  - PANCREATIC DISORDER [None]
  - NEPHROLITHIASIS [None]
  - CYSTOSCOPY [None]
